FAERS Safety Report 8129284-3 (Version None)
Quarter: 2012Q1

REPORT INFORMATION
  Report Type: 
  Country: None (occurrence: None)
  Receive Date: 20120210
  Receipt Date: 20111129
  Transmission Date: 20120608
  Serious: No
  Sender: FDA-Public Use
  Company Number: US-BRISTOL-MYERS SQUIBB COMPANY-16257156

PATIENT
  Age: 60 Year
  Sex: Female
  Weight: 79 kg

DRUGS (1)
  1. ORENCIA [Suspect]
     Indication: RHEUMATOID ARTHRITIS
     Dosage: FOR 7 OR 8 MONTHS LAST INFUSION WAS 03NOV2011 NEXT INFUSION DATE IS 07DEC2011
     Dates: start: 20110501

REACTIONS (1)
  - WEIGHT INCREASED [None]
